FAERS Safety Report 5671413-5 (Version None)
Quarter: 2008Q1

REPORT INFORMATION
  Report Type: 
  Country: None (occurrence: None)
  Receive Date: 20080318
  Receipt Date: 20080307
  Transmission Date: 20080703
  Serious: Yes (Other)
  Sender: FDA-Public Use
  Company Number: CA-PFIZER INC-2008022227

PATIENT
  Sex: Female

DRUGS (1)
  1. LYRICA [Suspect]
     Indication: NERVE INJURY
     Route: 048

REACTIONS (7)
  - DEPRESSED MOOD [None]
  - DISTURBANCE IN ATTENTION [None]
  - FEELING HOT [None]
  - MUSCLE SPASMS [None]
  - NERVE INJURY [None]
  - OEDEMA PERIPHERAL [None]
  - WEIGHT INCREASED [None]
